FAERS Safety Report 25449948 (Version 2)
Quarter: 2025Q4

REPORT INFORMATION
  Report Type: Report from Study
  Country: JP (occurrence: JP)
  Receive Date: 20250618
  Receipt Date: 20251101
  Transmission Date: 20260118
  Serious: Yes (Death, Hospitalization)
  Sender: RECORDATI
  Company Number: JP-ORPHANEU-2025004216

PATIENT
  Sex: Male

DRUGS (9)
  1. CARBAGLU [Suspect]
     Active Substance: CARGLUMIC ACID
     Indication: Methylmalonic acidaemia
     Dosage: 200 MILLIGRAM, TID (EVERY 8 HOURS)
     Dates: start: 20180331
  2. CARBAGLU [Suspect]
     Active Substance: CARGLUMIC ACID
     Dosage: 200 MILLIGRAM, TID (AFTER MEALS, TIMES OTHER THAN MORNING, NOON, AND NIGHT) VIA GASTROSTOMY
     Dates: start: 20200331, end: 20220907
  3. CYANOCOBALAMIN\PYRIDOXINE HYDROCHLORIDE\THIAMINE [Concomitant]
     Active Substance: CYANOCOBALAMIN\PYRIDOXINE HYDROCHLORIDE\THIAMINE
     Indication: Product used for unknown indication
     Dosage: 0.9 GRAM DAILY, TID (STARTED BEFORE CARBAGLU ADMINISTRATION)
     Route: 048
  4. Uralyt u [Concomitant]
     Indication: Product used for unknown indication
     Dosage: 1.5 GRAM DAILY DOSE, TID (STARTED BEFORE CARBAGLU ADMINISTRATION)
     Route: 048
     Dates: end: 20220907
  5. Uralyt u [Concomitant]
     Dosage: 2 GRAM DAILY DOSE, QID
     Route: 048
     Dates: start: 20180401, end: 20220907
  6. Argi u [Concomitant]
     Indication: Product used for unknown indication
     Dosage: 750 MILLIGRAM, QD (INJECTION) (STARTED BEFORE CARBAGLU ADMINISTRATION)
     Dates: end: 20220907
  7. Hycobal [Concomitant]
     Indication: Product used for unknown indication
     Dosage: 1000 MILLIGRAM DAILY, BID (INFUSION)
     Dates: start: 20191009, end: 20220907
  8. Cinal [Concomitant]
     Indication: Product used for unknown indication
     Dosage: 0.4 GRAM, BID (INFUSION) (STARTED BEFORE CARBAGLU ADMINISTRATION)
     Dates: end: 20220907
  9. Cinal [Concomitant]
     Indication: Disease complication

REACTIONS (2)
  - Viral infection [Fatal]
  - Agitation [Unknown]

NARRATIVE: CASE EVENT DATE: 20220101
